FAERS Safety Report 21573771 (Version 2)
Quarter: 2023Q1

REPORT INFORMATION
  Report Type: Report from Study
  Country: CN (occurrence: CN)
  Receive Date: 20221109
  Receipt Date: 20230315
  Transmission Date: 20230417
  Serious: Yes (Hospitalization)
  Sender: FDA-Public Use
  Company Number: CN-HENLIUS-22CN007167

PATIENT
  Age: 49 Year
  Sex: Female
  Weight: 54.5 kg

DRUGS (24)
  1. CARBOPLATIN [Suspect]
     Active Substance: CARBOPLATIN
     Indication: Breast cancer stage II
     Dosage: Q3W,
     Route: 042
     Dates: start: 20220706, end: 20220706
  2. DOCETAXEL [Suspect]
     Active Substance: DOCETAXEL
     Indication: Breast cancer stage II
     Dosage: IV DRIP, Q3W
     Route: 042
     Dates: start: 20220706, end: 20220706
  3. TRASTUZUMAB [Suspect]
     Active Substance: TRASTUZUMAB
     Indication: Breast cancer stage II
     Dosage: STRENGTH: 150 MILLIGRAM, ?Q3W,
     Route: 042
     Dates: start: 20220706, end: 20220706
  4. PERTUZUMAB [Suspect]
     Active Substance: PERTUZUMAB
     Indication: Breast cancer stage II
     Dosage: 840 MILLIGRAM, Q3W,
     Route: 042
     Dates: start: 20220707, end: 20220707
  5. METOCLOPRAMIDE [Concomitant]
     Active Substance: METOCLOPRAMIDE
     Indication: Antiemetic supportive care
     Dosage: UNK
     Route: 048
     Dates: end: 20220914
  6. PERTUZUMAB [Suspect]
     Active Substance: PERTUZUMAB
     Indication: Breast cancer stage II
     Dosage: 420 MILLIGRAM, Q3W, IV DRIP
     Route: 042
     Dates: start: 20220727, end: 20220727
  7. PERTUZUMAB [Suspect]
     Active Substance: PERTUZUMAB
     Indication: Breast cancer stage II
     Dosage: 420 MILLIGRAM, Q3W, IV DRIP
     Route: 042
     Dates: start: 20220917, end: 20220917
  8. CARBOPLATIN [Suspect]
     Active Substance: CARBOPLATIN
     Indication: Breast cancer stage II
     Dosage: Q3W, IV DRIP
     Route: 042
     Dates: start: 20220727, end: 20220727
  9. CARBOPLATIN [Suspect]
     Active Substance: CARBOPLATIN
     Indication: Breast cancer stage II
     Dosage: Q3W, IV DRIP
     Route: 042
     Dates: start: 20220817, end: 20220817
  10. CARBOPLATIN [Suspect]
     Active Substance: CARBOPLATIN
     Indication: Breast cancer stage II
     Dosage: Q3W, IV DRIP
     Route: 042
     Dates: start: 20220917, end: 20220917
  11. DOCETAXEL [Suspect]
     Active Substance: DOCETAXEL
     Indication: Breast cancer stage II
     Dosage: IV DRIP, Q3W
     Route: 042
     Dates: start: 20220727, end: 20220727
  12. DOCETAXEL [Suspect]
     Active Substance: DOCETAXEL
     Indication: Breast cancer stage II
     Dosage: IV DRIP, Q3W
     Route: 042
     Dates: start: 20220817, end: 20220817
  13. DOCETAXEL [Suspect]
     Active Substance: DOCETAXEL
     Indication: Breast cancer stage II
     Dosage: IV DRIP, Q3W
     Route: 042
     Dates: start: 20220917, end: 20220917
  14. TRASTUZUMAB [Suspect]
     Active Substance: TRASTUZUMAB
     Indication: Breast cancer stage II
     Dosage: STRENGTH: 150 MILLIGRAM, Q3W, IV DRIP
     Route: 042
     Dates: start: 20220727, end: 20220727
  15. TRASTUZUMAB [Suspect]
     Active Substance: TRASTUZUMAB
     Indication: Breast cancer stage II
     Dosage: STRENGTH: 150 MILLIGRAM, Q3W, IV DRIP
     Route: 042
     Dates: start: 20220817, end: 20220817
  16. TRASTUZUMAB [Suspect]
     Active Substance: TRASTUZUMAB
     Indication: Breast cancer stage II
     Dosage: STRENGTH: 150 MILLIGRAM, Q3W, IV DRIP
     Route: 042
     Dates: start: 20220917, end: 20220917
  17. TRASTUZUMAB [Suspect]
     Active Substance: TRASTUZUMAB
     Indication: Breast cancer stage II
     Dosage: STRENGTH: 150 MILLIGRAM, Q3W, IV DRIP
     Route: 042
     Dates: start: 20221009, end: 20221009
  18. TRASTUZUMAB [Suspect]
     Active Substance: TRASTUZUMAB
     Indication: Breast cancer stage II
     Dosage: STRENGTH: 150 MILLIGRAM, Q3W, IV DRIP
     Route: 042
     Dates: start: 20221102, end: 20221102
  19. CARBOPLATIN [Suspect]
     Active Substance: CARBOPLATIN
     Indication: Breast cancer stage II
     Dosage: Q3W, IV DRIP
     Route: 042
     Dates: start: 20221009, end: 20221009
  20. CARBOPLATIN [Suspect]
     Active Substance: CARBOPLATIN
     Indication: Breast cancer stage II
     Dosage: Q3W, IV DRIP
     Route: 042
     Dates: start: 20221102, end: 20221102
  21. DOCETAXEL [Suspect]
     Active Substance: DOCETAXEL
     Indication: Breast cancer stage II
     Dosage: IV DRIP, Q3W
     Route: 042
     Dates: start: 20221009, end: 20221009
  22. DOCETAXEL [Suspect]
     Active Substance: DOCETAXEL
     Indication: Breast cancer stage II
     Dosage: IV DRIP, Q3W
     Route: 042
     Dates: start: 20221102, end: 20221102
  23. PERTUZUMAB [Suspect]
     Active Substance: PERTUZUMAB
     Indication: Breast cancer stage II
     Dosage: 420 MILLIGRAM, Q3W, IV DRIP
     Route: 042
     Dates: start: 20221009, end: 20221009
  24. PERTUZUMAB [Suspect]
     Active Substance: PERTUZUMAB
     Indication: Breast cancer stage II
     Dosage: 420 MILLIGRAM, Q3W, IV DRIP
     Route: 042
     Dates: start: 20221102, end: 20221102

REACTIONS (1)
  - Drug-induced liver injury [Not Recovered/Not Resolved]

NARRATIVE: CASE EVENT DATE: 20220911
